FAERS Safety Report 8899591 (Version 1)
Quarter: 2012Q4

REPORT INFORMATION
  Report Type: 
  Country: FR (occurrence: FR)
  Receive Date: 20121109
  Receipt Date: 20121109
  Transmission Date: 20130627
  Serious: Yes (Hospitalization)
  Sender: FDA-Public Use
  Company Number: FR-PFIZER INC-2012275901

PATIENT
  Age: 66 Year
  Sex: Female

DRUGS (1)
  1. SUTENT [Suspect]
     Indication: THYROID PAPILLARY CARCINOMA
     Dosage: 37.5 mg, 1x/day
     Route: 048
     Dates: start: 20120216, end: 201203

REACTIONS (5)
  - Off label use [Recovered/Resolved with Sequelae]
  - Sigmoiditis [Recovered/Resolved with Sequelae]
  - Pneumoperitoneum [Recovered/Resolved with Sequelae]
  - Nausea [Unknown]
  - Vomiting [Unknown]
